FAERS Safety Report 5044954-1 (Version None)
Quarter: 2006Q2

REPORT INFORMATION
  Report Type: 
  Country: None (occurrence: None)
  Receive Date: 20060601
  Receipt Date: 20060324
  Transmission Date: 20061013
  Serious: No
  Sender: FDA-Public Use
  Company Number: US200603006050

PATIENT
  Age: 66 Year
  Sex: Male

DRUGS (3)
  1. CYMBALTA [Suspect]
     Indication: DEPRESSION
     Dosage: 60 MG, DAILY (1/D), ORAL
     Route: 048
     Dates: start: 20060322, end: 20060323
  2. VITAMINS [Concomitant]
  3. ANTIBIOTICS [Concomitant]

REACTIONS (8)
  - ASTHENIA [None]
  - DEPRESSION [None]
  - DIZZINESS [None]
  - FEELING ABNORMAL [None]
  - LETHARGY [None]
  - MALAISE [None]
  - SOMNOLENCE [None]
  - YAWNING [None]
